FAERS Safety Report 7990174-8 (Version None)
Quarter: 2011Q4

REPORT INFORMATION
  Report Type: 
  Country: None (occurrence: None)
  Receive Date: 20111219
  Receipt Date: 20111202
  Transmission Date: 20120403
  Serious: No
  Sender: FDA-Public Use
  Company Number: US-BAYER-2011-117511

PATIENT
  Sex: Male

DRUGS (1)
  1. LEVITRA [Suspect]
     Indication: ERECTILE DYSFUNCTION
     Dosage: UNK UNK, QD
     Route: 048
     Dates: start: 20110101, end: 20111201

REACTIONS (2)
  - FLATULENCE [None]
  - ABDOMINAL DISCOMFORT [None]
